FAERS Safety Report 11781268 (Version 4)
Quarter: 2016Q2

REPORT INFORMATION
  Report Type: Spontaneous
  Country: JP (occurrence: JP)
  Receive Date: 20151126
  Receipt Date: 20160404
  Transmission Date: 20160815
  Serious: Yes (Life-Threatening)
  Sender: FDA-Public Use
  Company Number: JP-ACTELION-A-CH2015-127941

PATIENT
  Age: 29 Year
  Sex: Female
  Weight: 51 kg

DRUGS (5)
  1. OPSUMIT [Suspect]
     Active Substance: MACITENTAN
     Indication: PULMONARY ARTERIAL HYPERTENSION
     Route: 048
  2. EPOPROSTENOL ACT [Suspect]
     Active Substance: EPOPROSTENOL
     Indication: PULMONARY ARTERIAL HYPERTENSION
     Dosage: 0.34 NG/KG, PER MIN
     Route: 042
     Dates: start: 20151116
  3. SILDENAFIL CITRATE. [Concomitant]
     Active Substance: SILDENAFIL CITRATE
  4. LANSOPRAZOLE. [Concomitant]
     Active Substance: LANSOPRAZOLE
  5. OXYGEN. [Concomitant]
     Active Substance: OXYGEN

REACTIONS (8)
  - Activated partial thromboplastin time prolonged [Unknown]
  - Red blood cell count decreased [Unknown]
  - Abdominal distension [Recovering/Resolving]
  - Platelet count decreased [Unknown]
  - Intra-abdominal haemorrhage [Recovering/Resolving]
  - Haematocrit decreased [Unknown]
  - Transfusion [Unknown]
  - Haemoglobin decreased [Unknown]

NARRATIVE: CASE EVENT DATE: 20151119
